FAERS Safety Report 25229474 (Version 1)
Quarter: 2025Q2

REPORT INFORMATION
  Report Type: Spontaneous
  Country: US (occurrence: US)
  Receive Date: 20250423
  Receipt Date: 20250423
  Transmission Date: 20250717
  Serious: No
  Sender: CSL Plasma
  Company Number: US-CSLP-12604867851-V14289641-2

PATIENT
  Age: 21 Year
  Sex: Female

DRUGS (2)
  1. ANTICOAGULANT SODIUM CITRATE [Suspect]
     Active Substance: SODIUM CITRATE
     Indication: Anticoagulant therapy
     Route: 050
     Dates: start: 20250329, end: 20250329
  2. VITAMIN D [Concomitant]
     Active Substance: VITAMIN D NOS
     Indication: Product used for unknown indication

REACTIONS (9)
  - Dizziness [Recovered/Resolved]
  - Tetany [Recovered/Resolved]
  - Anxiety [Recovered/Resolved]
  - Hypoaesthesia [Recovered/Resolved]
  - Muscle twitching [Recovered/Resolved]
  - Nausea [Recovered/Resolved]
  - Movement disorder [Recovered/Resolved]
  - Dyskinesia [Recovered/Resolved]
  - Paraesthesia [Recovered/Resolved]

NARRATIVE: CASE EVENT DATE: 20250329
